FAERS Safety Report 9958712 (Version 1)
Quarter: 2014Q1

REPORT INFORMATION
  Report Type: Spontaneous
  Country: US (occurrence: None)
  Receive Date: 20140227
  Receipt Date: 20140227
  Transmission Date: 20141002
  Serious: Yes (Death)
  Sender: FDA-Public Use
  Company Number: UTC-044977

PATIENT
  Age: 69 Year
  Sex: Female

DRUGS (2)
  1. REMODULIN [Suspect]
     Indication: COR PULMONALE CHRONIC
     Dosage: 36 UG/KG (0.025 UG/KG, 1 IN 1 MIN), SC
     Route: 058
     Dates: start: 20120912
  2. REVATIO (SILDENAFIL CITRATE) [Concomitant]

REACTIONS (3)
  - Pulmonary arterial hypertension [None]
  - Hepatic cirrhosis [None]
  - Right ventricular failure [None]
